FAERS Safety Report 5578949-6 (Version None)
Quarter: 2007Q4

REPORT INFORMATION
  Report Type: 
  Country: None (occurrence: None)
  Receive Date: 20071228
  Receipt Date: 20071218
  Transmission Date: 20080405
  Serious: Yes (Hospitalization, Other)
  Sender: FDA-Public Use
  Company Number: 2007-03777

PATIENT
  Age: 63 Year
  Sex: Male
  Weight: 97.1 kg

DRUGS (4)
  1. VELCADE [Suspect]
     Indication: MULTIPLE MYELOMA
     Dosage: 1.30MG/M2, IV BOLUS
     Route: 040
     Dates: start: 20071109, end: 20071112
  2. THALIDOMIDE [Concomitant]
  3. DEXAMETHASONE TAB [Concomitant]
  4. ASPIRIN [Concomitant]

REACTIONS (8)
  - ARTHRALGIA [None]
  - BODY TEMPERATURE INCREASED [None]
  - CHILLS [None]
  - CONSTIPATION [None]
  - FATIGUE [None]
  - MYALGIA [None]
  - NAUSEA [None]
  - VISUAL DISTURBANCE [None]
